FAERS Safety Report 25313864 (Version 7)
Quarter: 2025Q4

REPORT INFORMATION
  Report Type: Spontaneous
  Country: AU (occurrence: AU)
  Receive Date: 20250514
  Receipt Date: 20251201
  Transmission Date: 20260117
  Serious: Yes (Hospitalization, Other)
  Sender: MYLAN
  Company Number: AU-MYLANLABS-2025M1039653

PATIENT
  Age: 27 Year
  Sex: Female

DRUGS (11)
  1. CLOZARIL [Suspect]
     Active Substance: CLOZAPINE
     Indication: Schizophrenia
     Dosage: UNK, BID (50 MG IN MORNING, 100 MG AT NIGHT)
     Dates: start: 20250415, end: 20250427
  2. CLOZARIL [Suspect]
     Active Substance: CLOZAPINE
     Dosage: UNK
  3. CLOZARIL [Suspect]
     Active Substance: CLOZAPINE
     Dosage: UNK
  4. HALOPERIDOL [Concomitant]
     Active Substance: HALOPERIDOL
     Dosage: UNK, BID (10 MG AT NIGHT AND 5 MG IN MORNING)
  5. HALOPERIDOL [Concomitant]
     Active Substance: HALOPERIDOL
     Dosage: 50 MILLIGRAM, Q28D (HALOPERIDOL LAI; EVERY 4 WEEKS)
  6. HALOPERIDOL [Concomitant]
     Active Substance: HALOPERIDOL
     Dosage: 1 MILLIGRAM, PM (AT NIGHT; WITH A VIEW TO STOPPING)
  7. LORAZEPAM [Concomitant]
     Active Substance: LORAZEPAM
     Dosage: 1 MILLIGRAM, BID (BD)
  8. LORAZEPAM [Concomitant]
     Active Substance: LORAZEPAM
     Dosage: 1 MILLIGRAM, PM (AT NIGHT)
  9. OLANZAPINE [Concomitant]
     Active Substance: OLANZAPINE
     Dosage: 10 MILLIGRAM, PM (AT NIGHT)
  10. BENZTROPINE [Concomitant]
     Active Substance: BENZTROPINE
     Dosage: 1 MILLIGRAM, PM (AT NIGHT)
  11. SERTRALINE [Concomitant]
     Active Substance: SERTRALINE HYDROCHLORIDE
     Indication: Obsessive-compulsive disorder
     Dosage: 50 MILLIGRAM, AM (IN MORNING)

REACTIONS (13)
  - Myocarditis [Unknown]
  - Mental impairment [Unknown]
  - Neutropenia [Recovered/Resolved]
  - Influenza [Unknown]
  - Blood osmolarity increased [Unknown]
  - C-reactive protein increased [Not Recovered/Not Resolved]
  - Troponin increased [Unknown]
  - Tachycardia [Unknown]
  - Blood pressure decreased [Unknown]
  - White blood cell count increased [Unknown]
  - Neutrophil count increased [Unknown]
  - Blood alkaline phosphatase increased [Unknown]
  - White blood cell count decreased [Recovered/Resolved]

NARRATIVE: CASE EVENT DATE: 20250401
